FAERS Safety Report 5729386-2 (Version None)
Quarter: 2008Q2

REPORT INFORMATION
  Report Type: 
  Country: None (occurrence: None)
  Receive Date: 20080506
  Receipt Date: 20080424
  Transmission Date: 20081010
  Serious: Yes (Other)
  Sender: FDA-Public Use
  Company Number: US-PFIZER INC-2008038295

PATIENT
  Sex: Female
  Weight: 63.5 kg

DRUGS (3)
  1. CHANTIX [Suspect]
     Indication: SMOKING CESSATION THERAPY
  2. ORAL CONTRACEPTIVE NOS [Concomitant]
  3. BC POWDER [Concomitant]

REACTIONS (11)
  - ANGER [None]
  - DECREASED APPETITE [None]
  - EMOTIONAL DISORDER [None]
  - FEELING JITTERY [None]
  - FORMICATION [None]
  - HOMICIDAL IDEATION [None]
  - IRRITABILITY [None]
  - MOOD ALTERED [None]
  - MOVEMENT DISORDER [None]
  - PERSONALITY DISORDER [None]
  - PRURITUS [None]
